FAERS Safety Report 13014322 (Version 1)
Quarter: 2016Q4

REPORT INFORMATION
  Report Type: Spontaneous
  Country: IT (occurrence: IT)
  Receive Date: 20161209
  Receipt Date: 20161209
  Transmission Date: 20170207
  Serious: Yes (Other)
  Sender: FDA-Public Use
  Company Number: IT-TEVA-718032ISR

PATIENT
  Age: 28 Year
  Sex: Female

DRUGS (9)
  1. MEZLOCILLIN [Suspect]
     Active Substance: MEZLOCILLIN
     Indication: OCCUPATIONAL EXPOSURE TO PRODUCT
     Route: 065
  2. VANCOMICINA [Suspect]
     Active Substance: VANCOMYCIN
     Route: 065
  3. IMIPENEM AND CILASTATIN [Suspect]
     Active Substance: CILASTATIN SODIUM\IMIPENEM
     Indication: OCCUPATIONAL EXPOSURE TO PRODUCT
     Route: 065
  4. PIPERACILLIN [Suspect]
     Active Substance: PIPERACILLIN
     Indication: OCCUPATIONAL EXPOSURE TO PRODUCT
     Route: 065
  5. ERTAPENEM [Suspect]
     Active Substance: ERTAPENEM
     Indication: OCCUPATIONAL EXPOSURE TO PRODUCT
     Route: 065
  6. MEROPENEM. [Suspect]
     Active Substance: MEROPENEM
     Indication: OCCUPATIONAL EXPOSURE TO PRODUCT
     Route: 065
  7. CIPROFLOXACINA [Suspect]
     Active Substance: CIPROFLOXACIN
     Route: 065
  8. TEICOPLANINA [Suspect]
     Active Substance: TEICOPLANIN
     Route: 065
  9. AMPICILLIN [Suspect]
     Active Substance: AMPICILLIN
     Indication: OCCUPATIONAL EXPOSURE TO PRODUCT
     Route: 065

REACTIONS (3)
  - Dermatitis contact [Recovered/Resolved]
  - Occupational exposure to product [Unknown]
  - Type IV hypersensitivity reaction [Unknown]
